FAERS Safety Report 14651144 (Version 1)
Quarter: 2018Q1

REPORT INFORMATION
  Report Type: Spontaneous
  Country: CA (occurrence: CA)
  Receive Date: 20180316
  Receipt Date: 20180316
  Transmission Date: 20180509
  Serious: Yes (Other)
  Sender: FDA-Public Use
  Company Number: CA-TEVA-2018-CA-868732

PATIENT
  Age: 56 Year
  Sex: Female
  Weight: 63.56 kg

DRUGS (1)
  1. TEVA-CLINDAMYCIN [Suspect]
     Active Substance: CLINDAMYCIN PHOSPHATE
     Indication: GINGIVITIS
     Dosage: 1200 MILLIGRAM DAILY;
     Route: 048

REACTIONS (4)
  - Dizziness [Unknown]
  - Asthenia [Unknown]
  - Vision blurred [Unknown]
  - Fatigue [Unknown]
